FAERS Safety Report 19259385 (Version 1)
Quarter: 2021Q2

REPORT INFORMATION
  Report Type: Spontaneous
  Country: US (occurrence: US)
  Receive Date: 20210514
  Receipt Date: 20210514
  Transmission Date: 20210717
  Serious: No
  Sender: FDA-Public Use
  Company Number: US-SA-2021SA149311

PATIENT
  Age: 80 Year
  Sex: Female

DRUGS (4)
  1. TOUJEO [Suspect]
     Active Substance: INSULIN GLARGINE
     Indication: TYPE 2 DIABETES MELLITUS
     Dosage: 12 IU, QD (AT NIGHT)
     Dates: start: 2019
  2. INSULIN LISPRO [Suspect]
     Active Substance: INSULIN LISPRO
     Dosage: 2 IU, 3 IU AND 5 IU (BREAKFAST, LUNCH, DINNER)
  3. INSULIN LISPRO [Suspect]
     Active Substance: INSULIN LISPRO
     Dosage: DOSE INCREASED
     Dates: start: 202104
  4. LANTUS [Suspect]
     Active Substance: INSULIN GLARGINE
     Dosage: 12 IU
     Dates: end: 2019

REACTIONS (2)
  - Hyperglycaemia [Unknown]
  - Weight decreased [Unknown]
